FAERS Safety Report 25829142 (Version 1)
Quarter: 2025Q3

REPORT INFORMATION
  Report Type: Spontaneous
  Country: US (occurrence: US)
  Receive Date: 20250922
  Receipt Date: 20250922
  Transmission Date: 20251021
  Serious: No
  Sender: SANDOZ
  Company Number: US-SANDOZ-SDZ2025US067053

PATIENT
  Age: 67 Year
  Sex: Female

DRUGS (1)
  1. VIVELLE-DOT [Suspect]
     Active Substance: ESTRADIOL
     Indication: Product used for unknown indication
     Route: 062

REACTIONS (6)
  - Peripheral swelling [Unknown]
  - Menopause [Unknown]
  - Blood oestrogen abnormal [Unknown]
  - Limb discomfort [Unknown]
  - Migraine [Unknown]
  - Drug ineffective [Unknown]
